FAERS Safety Report 19353073 (Version 4)
Quarter: 2021Q4

REPORT INFORMATION
  Report Type: Report from Study
  Country: US (occurrence: US)
  Receive Date: 20210601
  Receipt Date: 20211001
  Transmission Date: 20220303
  Serious: Yes (Other)
  Sender: FDA-Public Use
  Company Number: US-JAZZ-2021-US-006165

PATIENT
  Age: 27 Year
  Sex: Female

DRUGS (6)
  1. XYREM [Suspect]
     Active Substance: SODIUM OXYBATE
     Indication: Narcolepsy
     Dosage: 2.25 GRAM, QD
     Route: 048
     Dates: start: 202103, end: 202103
  2. XYREM [Suspect]
     Active Substance: SODIUM OXYBATE
     Dosage: UNKNOWN DOSE
     Route: 048
     Dates: start: 202103, end: 20210331
  3. XYREM [Suspect]
     Active Substance: SODIUM OXYBATE
     Dosage: 3 GRAM, BID
     Route: 048
     Dates: start: 20210401
  4. LATUDA [Suspect]
     Active Substance: LURASIDONE HYDROCHLORIDE
     Indication: Bipolar disorder
     Dosage: 60 MILLIGRAM
  5. LATUDA [Suspect]
     Active Substance: LURASIDONE HYDROCHLORIDE
     Dosage: 120 MILLIGRAM
  6. NUVIGIL [Concomitant]
     Active Substance: ARMODAFINIL

REACTIONS (9)
  - Bipolar disorder [Unknown]
  - Condition aggravated [Unknown]
  - Musculoskeletal stiffness [Not Recovered/Not Resolved]
  - Back pain [Not Recovered/Not Resolved]
  - Dry mouth [Not Recovered/Not Resolved]
  - Abdominal pain upper [Unknown]
  - Fatigue [Unknown]
  - Pre-existing condition improved [Recovering/Resolving]
  - Inappropriate schedule of product administration [Unknown]

NARRATIVE: CASE EVENT DATE: 20210301
